FAERS Safety Report 13404961 (Version 2)
Quarter: 2017Q2

REPORT INFORMATION
  Report Type: Report from Study
  Country: None (occurrence: US)
  Receive Date: 20170405
  Receipt Date: 20170523
  Transmission Date: 20170830
  Serious: Yes (Hospitalization, Other)
  Sender: FDA-Public Use
  Company Number: US-ABBVIE-17K-163-1929928-00

PATIENT
  Age: 63 Year
  Sex: Female
  Weight: 113.5 kg

DRUGS (1)
  1. HUMIRA [Suspect]
     Active Substance: ADALIMUMAB
     Indication: CROHN^S DISEASE
     Route: 058

REACTIONS (4)
  - Dehydration [Recovered/Resolved]
  - Gastrointestinal tract irritation [Recovered/Resolved]
  - Procedural complication [Recovered/Resolved]
  - Ileal ulcer [Recovered/Resolved]

NARRATIVE: CASE EVENT DATE: 201703
